FAERS Safety Report 7428395-5 (Version None)
Quarter: 2011Q2

REPORT INFORMATION
  Report Type: 
  Country: None (occurrence: None)
  Receive Date: 20110413
  Receipt Date: 20110401
  Transmission Date: 20111010
  Serious: Yes (Hospitalization, Other)
  Sender: FDA-Public Use
  Company Number: 2010US004831

PATIENT
  Age: 46 Year
  Sex: Male
  Weight: 77 kg

DRUGS (16)
  1. FAMOTIDINE [Concomitant]
  2. PREDNISONE [Concomitant]
  3. PREVACID [Concomitant]
  4. PROGRAF [Suspect]
     Indication: RENAL TRANSPLANT
     Dosage: 3 MG, BID, ORAL 5 MG, BID, ORAL 8 MG, BID, ORAL ORAL 6MG, UID/QD, ORAL
     Route: 048
     Dates: start: 20101101, end: 20110112
  5. PROGRAF [Suspect]
     Indication: RENAL TRANSPLANT
     Dosage: 3 MG, BID, ORAL 5 MG, BID, ORAL 8 MG, BID, ORAL ORAL 6MG, UID/QD, ORAL
     Route: 048
     Dates: start: 20110112
  6. PROGRAF [Suspect]
     Indication: RENAL TRANSPLANT
     Dosage: 3 MG, BID, ORAL 5 MG, BID, ORAL 8 MG, BID, ORAL ORAL 6MG, UID/QD, ORAL
     Route: 048
     Dates: end: 20100101
  7. SULFAMETHOXAZOLE AND TRIMETHOPRIM [Concomitant]
  8. LORCET 10/650 (HYDROCODONE BITARTRATE, PARACETAMOL) [Concomitant]
  9. COLACE (DOCUSATE SODIUM) [Concomitant]
  10. ZEMPLAR [Concomitant]
  11. EPOGEN [Concomitant]
  12. CLONIDINE [Concomitant]
  13. LABETALOL HCL [Concomitant]
  14. MINOXIDIL [Concomitant]
  15. CELLCEPT [Concomitant]
  16. DULCOLAX [Concomitant]

REACTIONS (29)
  - PERITONEAL DIALYSIS [None]
  - PLEURAL DISORDER [None]
  - HYPOTENSION [None]
  - HYPERPARATHYROIDISM [None]
  - MALNUTRITION [None]
  - PERICARDIAL EFFUSION [None]
  - LEFT ATRIAL DILATATION [None]
  - LEFT VENTRICULAR HYPERTROPHY [None]
  - MYOCARDIAL INFARCTION [None]
  - ANAEMIA [None]
  - ABDOMINAL PAIN [None]
  - WEIGHT DECREASED [None]
  - DEPRESSION [None]
  - PERITONITIS [None]
  - HYPERKALAEMIA [None]
  - ECONOMIC PROBLEM [None]
  - HEPATIC FAILURE [None]
  - KIDNEY ENLARGEMENT [None]
  - RENAL FAILURE [None]
  - TREATMENT NONCOMPLIANCE [None]
  - CONVULSION [None]
  - KIDNEY TRANSPLANT REJECTION [None]
  - ASCITES [None]
  - PLEURAL EFFUSION [None]
  - BRAIN NATRIURETIC PEPTIDE INCREASED [None]
  - ELECTROENCEPHALOGRAM ABNORMAL [None]
  - HEPATIC VEIN DILATATION [None]
  - FLUID OVERLOAD [None]
  - BLOOD PRESSURE SYSTOLIC INCREASED [None]
